FAERS Safety Report 8390190-0 (Version None)
Quarter: 2012Q2

REPORT INFORMATION
  Report Type: 
  Country: None (occurrence: None)
  Receive Date: 20120529
  Receipt Date: 20120514
  Transmission Date: 20120825
  Serious: Yes (Hospitalization, Other)
  Sender: FDA-Public Use
  Company Number: JP-PFIZER INC-2010100266

PATIENT
  Age: 83 Year
  Sex: Male
  Weight: 54 kg

DRUGS (16)
  1. ISALON [Concomitant]
     Indication: GASTRITIS
     Dosage: UNK
     Dates: start: 20100602
  2. MUCODYNE [Concomitant]
     Indication: GASTRITIS
     Dosage: UNK
     Dates: start: 20100602
  3. TICLOPIDINE HCL [Concomitant]
     Indication: ANGINA PECTORIS
     Dosage: UNK
     Dates: start: 20100609
  4. SIGMART [Concomitant]
     Indication: ANGINA PECTORIS
     Dosage: UNK
     Dates: start: 20100602
  5. MUCOSTA [Concomitant]
     Indication: GASTRITIS
     Dosage: UNK
     Dates: start: 20100602
  6. LACRIMIN [Concomitant]
     Indication: LACRIMATION INCREASED
     Dosage: UNK
  7. SEVEN EP [Concomitant]
     Indication: GASTRITIS
     Dosage: UNK
     Dates: start: 20100602
  8. MEDICON [Concomitant]
     Indication: COUGH
     Dosage: UNK
     Dates: start: 20100601, end: 20100611
  9. DEPAS [Concomitant]
     Indication: ABDOMINAL DISCOMFORT
     Dosage: UNK
     Dates: start: 20060509
  10. GASMOTIN [Concomitant]
     Indication: GASTRITIS
     Dosage: UNK
     Dates: start: 20100602
  11. SELBEX [Concomitant]
     Indication: GASTRITIS
     Dosage: UNK
     Dates: start: 20100602
  12. RABEPRAZOLE SODIUM [Concomitant]
     Indication: GASTROOESOPHAGEAL REFLUX DISEASE
     Dosage: UNK
     Dates: start: 20100602
  13. CELEBREX [Suspect]
     Indication: BACK PAIN
     Dosage: 100 MG, UNK
     Route: 048
     Dates: start: 20100611, end: 20100622
  14. MOTONALIN [Concomitant]
     Indication: MYALGIA
     Dosage: UNK
     Dates: start: 20100602
  15. ALLOID G [Concomitant]
     Indication: GASTRITIS
     Dosage: UNK
     Route: 048
     Dates: start: 20100602
  16. ASPIRIN [Concomitant]
     Indication: ANGINA PECTORIS
     Dosage: UNK
     Dates: start: 20100609

REACTIONS (4)
  - LIVER DISORDER [None]
  - GAMMA-GLUTAMYLTRANSFERASE INCREASED [None]
  - NEURECTOMY [None]
  - BLOOD ALKALINE PHOSPHATASE INCREASED [None]
